FAERS Safety Report 7376736-X (Version None)
Quarter: 2011Q1

REPORT INFORMATION
  Report Type: 
  Country: None (occurrence: None)
  Receive Date: 20110325
  Receipt Date: 20110316
  Transmission Date: 20110831
  Serious: Yes (Other)
  Sender: FDA-Public Use
  Company Number: US-ASTRAZENECA-2011SE15238

PATIENT
  Age: 68 Year
  Sex: Female

DRUGS (2)
  1. OXYGEN [Concomitant]
  2. PULMICORT FLEXHALER [Suspect]
     Route: 055

REACTIONS (2)
  - ARTHRITIS [None]
  - OXYGEN SUPPLEMENTATION [None]
